FAERS Safety Report 15738242 (Version 1)
Quarter: 2018Q4

REPORT INFORMATION
  Report Type: Spontaneous
  Country: FR (occurrence: FR)
  Receive Date: 20181219
  Receipt Date: 20181219
  Transmission Date: 20190205
  Serious: Yes (Other)
  Sender: FDA-Public Use
  Company Number: FR-PROVELL PHARMACEUTICALS-2060353

PATIENT
  Age: 35 Year
  Sex: Female

DRUGS (4)
  1. EUTHYROX [Suspect]
     Active Substance: LEVOTHYROXINE SODIUM
     Indication: PRODUCT USED FOR UNKNOWN INDICATION
  2. LEVOTHYROX NF [Suspect]
     Active Substance: LEVOTHYROXINE SODIUM
  3. LEVOTHYROX NF [Suspect]
     Active Substance: LEVOTHYROXINE SODIUM
  4. LEVOTHYROX NF [Suspect]
     Active Substance: LEVOTHYROXINE SODIUM

REACTIONS (3)
  - Abortion spontaneous [Recovered/Resolved]
  - Blood thyroid stimulating hormone increased [Recovered/Resolved]
  - Maternal exposure during pregnancy [Recovered/Resolved]
